FAERS Safety Report 5323534-4 (Version None)
Quarter: 2007Q2

REPORT INFORMATION
  Report Type: 
  Country: None (occurrence: None)
  Receive Date: 20070514
  Receipt Date: 20070504
  Transmission Date: 20071010
  Serious: Yes (Disabling)
  Sender: FDA-Public Use
  Company Number: CH-AMGEN-UK223704

PATIENT
  Age: 72 Year
  Sex: Female
  Weight: 66 kg

DRUGS (3)
  1. MIMPARA [Suspect]
     Indication: HYPERPARATHYROIDISM PRIMARY
     Dates: start: 20050921, end: 20070101
  2. EUTHYROX [Concomitant]
     Route: 048
  3. FOSAMAX [Concomitant]
     Route: 048

REACTIONS (3)
  - ANORGASMIA [None]
  - LOSS OF LIBIDO [None]
  - MACULAR DEGENERATION [None]
